FAERS Safety Report 7595198-0 (Version None)
Quarter: 2011Q3

REPORT INFORMATION
  Report Type: 
  Country: None (occurrence: None)
  Receive Date: 20110707
  Receipt Date: 20110705
  Transmission Date: 20111222
  Serious: Yes (Hospitalization)
  Sender: FDA-Public Use
  Company Number: IT-PFIZER INC-2011149675

PATIENT
  Age: 78 Year
  Sex: Male

DRUGS (2)
  1. LIPIODOL ULTRA-FLUID [Concomitant]
  2. EPIRUBICIN HYDROCHLORIDE [Suspect]
     Dosage: UNK
     Dates: start: 20110629, end: 20110629

REACTIONS (2)
  - RESPIRATORY ARREST [None]
  - TONGUE OEDEMA [None]
